FAERS Safety Report 15364461 (Version 1)
Quarter: 2018Q3

REPORT INFORMATION
  Report Type: Spontaneous
  Country: DE (occurrence: DE)
  Receive Date: 20180909
  Receipt Date: 20180909
  Transmission Date: 20181010
  Serious: Yes (Other)
  Sender: FDA-Public Use
  Company Number: PHHY2018DE090310

PATIENT
  Sex: Male

DRUGS (1)
  1. TACROLIMUS. [Suspect]
     Active Substance: TACROLIMUS
     Indication: TRANSPLANT
     Dosage: 2 OT, QD (DAILY, DOSAGE: IN THE MORNING 7, NOON 0, IN THE EVENING 6.6)
     Route: 048
     Dates: start: 20070402, end: 20091021

REACTIONS (2)
  - Immunosuppressant drug level [Unknown]
  - Histology abnormal [Unknown]
